FAERS Safety Report 24180347 (Version 3)
Quarter: 2024Q3

REPORT INFORMATION
  Report Type: Spontaneous
  Country: PL (occurrence: PL)
  Receive Date: 20240806
  Receipt Date: 20240816
  Transmission Date: 20241016
  Serious: Yes (Hospitalization)
  Sender: PFIZER
  Company Number: PL-ROCHE-10000032393

PATIENT
  Age: 68 Year
  Sex: Female
  Weight: 69.2 kg

DRUGS (36)
  1. DOXORUBICIN HYDROCHLORIDE [Suspect]
     Active Substance: DOXORUBICIN HYDROCHLORIDE
     Indication: Diffuse large B-cell lymphoma
     Dosage: 88.5 MG, EVERY 3 WEEKS
     Route: 042
     Dates: start: 20240620
  2. POLIVY [Suspect]
     Active Substance: POLATUZUMAB VEDOTIN-PIIQ
     Indication: Diffuse large B-cell lymphoma
     Dosage: 126.36 MG, EVERY 3 WEEKS
     Route: 042
     Dates: start: 20240620
  3. CYCLOPHOSPHAMIDE [Suspect]
     Active Substance: CYCLOPHOSPHAMIDE
     Indication: Diffuse large B-cell lymphoma
     Dosage: 1327.5 MG, EVERY 3 WEEKS
     Route: 042
     Dates: start: 20240620
  4. PREDNISONE [Suspect]
     Active Substance: PREDNISONE
     Indication: Diffuse large B-cell lymphoma
     Dosage: 100 MG, EVERY 3 WEEKS
     Route: 048
     Dates: start: 20240620
  5. MABTHERA [Suspect]
     Active Substance: RITUXIMAB
     Indication: Diffuse large B-cell lymphoma
     Dosage: 663.75 MG, EVERY 3 WEEKS
     Route: 042
     Dates: start: 20240620
  6. FASTURTEC [Concomitant]
     Active Substance: RASBURICASE
     Indication: Prophylaxis
     Dosage: GIVEN FOR PROPHYLAXIS IS YES
  7. FASTURTEC [Concomitant]
     Active Substance: RASBURICASE
     Dosage: GIVEN FOR PROPHYLAXIS IS YES
  8. FILGRASTIM [Concomitant]
     Active Substance: FILGRASTIM
     Indication: Prophylaxis
     Dosage: DRUG DOSE FIRST ADMINISTERED IS 48 OTHERGIVEN FOR PROPHYLAXIS IS YES
     Route: 058
     Dates: start: 20240622, end: 20240629
  9. FILGRASTIM [Concomitant]
     Active Substance: FILGRASTIM
     Dosage: DRUG DOSE FIRST ADMINISTERED IS 48 OTHERGIVEN FOR PROPHYLAXIS IS YES
     Route: 058
     Dates: start: 20240718, end: 20240721
  10. OMEPRAZOLE [Concomitant]
     Active Substance: OMEPRAZOLE
     Indication: Prophylaxis
     Dosage: 20 MG GIVEN FOR PROPHYLAXIS IS YES
     Route: 048
  11. FILGRASTIM [Concomitant]
     Active Substance: FILGRASTIM
     Indication: Prophylaxis
     Dosage: UNK, 1X/DAY. DRUG DOSE FIRST ADMINISTERED IS 48 OTHERGIVEN FOR PROPHYLAXIS IS YES
     Route: 058
  12. ELECTROLYTES NOS [Concomitant]
     Active Substance: ELECTROLYTES NOS
     Indication: Prophylaxis
     Dosage: 500 ML FREQ:.33 D;GIVEN FOR PROPHYLAXIS IS YES
  13. ONDANSETRON [Concomitant]
     Active Substance: ONDANSETRON
     Indication: Prophylaxis of nausea and vomiting
     Dosage: FREQ:.33 D;GIVEN FOR PROPHYLAXIS IS YES
  14. MAGNESIUM SULFATE [Concomitant]
     Active Substance: MAGNESIUM SULFATE\MAGNESIUM SULFATE HEPTAHYDRATE
     Indication: Prophylaxis
     Dosage: GIVEN FOR PROPHYLAXIS IS YES
     Dates: start: 20240718, end: 20240719
  15. CALCIUM CARBONATE [Concomitant]
     Active Substance: CALCIUM CARBONATE
     Indication: Mineral supplementation
     Dosage: FREQ:0.5 D;GIVEN FOR PROPHYLAXIS IS YES
     Route: 048
     Dates: start: 20240621, end: 20240622
  16. CALCIUM CARBONATE [Concomitant]
     Active Substance: CALCIUM CARBONATE
     Dosage: GIVEN FOR PROPHYLAXIS IS YES
     Route: 048
     Dates: start: 20240719, end: 20240720
  17. CALCIUM CHLORIDE [Concomitant]
     Active Substance: CALCIUM CHLORIDE
     Indication: Prophylaxis
     Dosage: 10 %, 1X/DAY, DRUG DOSE FIRST ADMINISTERED IS 1 AMPULE
     Dates: start: 20240718, end: 20240718
  18. NEBIVOLOL [Concomitant]
     Active Substance: NEBIVOLOL
     Indication: Hypertension
     Dosage: 5 MG, 1X/DAY
     Route: 048
  19. ALLOPURINOL [Concomitant]
     Active Substance: ALLOPURINOL
     Indication: Hyperuricaemia
     Dosage: GIVEN FOR PROPHYLAXIS IS YES
     Route: 048
     Dates: start: 20240711, end: 20240719
  20. ALLOPURINOL [Concomitant]
     Active Substance: ALLOPURINOL
     Dosage: FREQ:.0.5 D;GIVEN FOR PROPHYLAXIS IS YES
     Route: 048
  21. FUROSEMIDE [Concomitant]
     Active Substance: FUROSEMIDE
     Indication: Prophylaxis
     Dosage: FREQ:.0.5 D;GIVEN FOR PROPHYLAXIS IS YES
  22. ESSELIV FORTE [Concomitant]
     Indication: Prophylaxis
     Dosage: FREQ:.33 D;GIVEN FOR PROPHYLAXIS IS YES
     Route: 048
     Dates: start: 20240620, end: 20240711
  23. ESSELIV FORTE [Concomitant]
     Indication: Alanine aminotransferase increased
     Dosage: FREQ:.33 D;GIVEN FOR PROPHYLAXIS IS YES
     Route: 048
     Dates: start: 20240718, end: 20240720
  24. ACETAMINOPHEN [Concomitant]
     Active Substance: ACETAMINOPHEN
     Dosage: 1000 MG
     Dates: start: 20240719, end: 20240719
  25. POTASSIUM CHLORIDE [Concomitant]
     Active Substance: POTASSIUM CHLORIDE
     Dosage: 391 MBQ
     Dates: start: 20240718
  26. DEXAMETHASONE [Concomitant]
     Active Substance: DEXAMETHASONE
     Dosage: 20 MG, 1X/DAY
     Dates: start: 20240719, end: 20240719
  27. NYSTATIN [Concomitant]
     Active Substance: NYSTATIN
     Dosage: 100000 IU
     Dates: start: 20240718, end: 20240718
  28. ONDANSETRON HYDROCHLORIDE [Concomitant]
     Active Substance: ONDANSETRON HYDROCHLORIDE
     Indication: Prophylaxis of nausea and vomiting
     Dosage: 8 MG GIVEN FOR PROPHYLAXIS IS YES
  29. PROMETHAZINE [Concomitant]
     Active Substance: PROMETHAZINE HYDROCHLORIDE
     Dosage: 25 MG
     Dates: start: 20240719, end: 20240719
  30. PRONTORAL [Concomitant]
     Dosage: 15 ML
     Dates: start: 20240718, end: 20240720
  31. BISEPTOL [Concomitant]
     Active Substance: SULFAMETHOXAZOLE\TRIMETHOPRIM
     Dosage: 960 MG
     Dates: start: 20240719
  32. CHOLECALCIFEROL [Concomitant]
     Active Substance: CHOLECALCIFEROL
     Dosage: 2000 IU, 1X/DAY
     Dates: start: 20240719, end: 20240720
  33. ACYCLOVIR [Concomitant]
     Active Substance: ACYCLOVIR
     Dosage: 400 MG
     Dates: start: 20240718
  34. POTASSIUM CHLORIDE [Concomitant]
     Active Substance: POTASSIUM CHLORIDE
     Dosage: 40 OTHER
     Dates: start: 20240718, end: 20240718
  35. POTASSIUM CHLORIDE [Concomitant]
     Active Substance: POTASSIUM CHLORIDE
     Dosage: 20 OTHER
     Dates: start: 20240719, end: 20240719
  36. ALLOPURINOL [Concomitant]
     Active Substance: ALLOPURINOL
     Dosage: 100 MG, 1X/DAY
     Dates: start: 20240719

REACTIONS (1)
  - Anaemia [Recovered/Resolved]

NARRATIVE: CASE EVENT DATE: 20240718
